FAERS Safety Report 15741013 (Version 1)
Quarter: 2018Q4

REPORT INFORMATION
  Report Type: Spontaneous
  Country: DE (occurrence: DE)
  Receive Date: 20181219
  Receipt Date: 20181219
  Transmission Date: 20190205
  Serious: Yes (Other)
  Sender: FDA-Public Use
  Company Number: DE-SA-2018SA338010

PATIENT
  Sex: Female

DRUGS (2)
  1. DUPIXENT [Suspect]
     Active Substance: DUPILUMAB
     Indication: PRURITUS
  2. DUPIXENT [Suspect]
     Active Substance: DUPILUMAB
     Indication: URTICARIA
     Route: 051

REACTIONS (7)
  - Refraction disorder [Unknown]
  - Eyelid irritation [Unknown]
  - Conjunctival irritation [Unknown]
  - Macular degeneration [Unknown]
  - Amblyopia [Unknown]
  - Cataract [Unknown]
  - Blindness [Unknown]
